FAERS Safety Report 24692409 (Version 1)
Quarter: 2024Q4

REPORT INFORMATION
  Report Type: Spontaneous
  Country: US (occurrence: None)
  Receive Date: 20241203
  Receipt Date: 20241203
  Transmission Date: 20250115
  Serious: No
  Sender: Public
  Company Number: None

PATIENT
  Age: 78 Year
  Sex: Male
  Weight: 87 kg

DRUGS (2)
  1. CEFTAROLINE FOSAMIL [Suspect]
     Active Substance: CEFTAROLINE FOSAMIL
     Dosage: FREQUENCY : 3 TIMES A DAY;?
     Route: 042
  2. ALLOPURINOL [Suspect]
     Active Substance: ALLOPURINOL

REACTIONS (6)
  - Tubulointerstitial nephritis [None]
  - Acute kidney injury [None]
  - Therapy change [None]
  - Hypervolaemia [None]
  - Therapy cessation [None]
  - Urinary tract obstruction [None]

NARRATIVE: CASE EVENT DATE: 20240805
